FAERS Safety Report 9620160 (Version 1)
Quarter: 2013Q4

REPORT INFORMATION
  Report Type: Spontaneous
  Country: CA (occurrence: CA)
  Receive Date: 20131014
  Receipt Date: 20131014
  Transmission Date: 20140711
  Serious: Yes (Death, Other)
  Sender: FDA-Public Use
  Company Number: CA-MILLENNIUM PHARMACEUTICALS, INC.-2013TUS001423

PATIENT
  Age: 37 Year
  Sex: Female

DRUGS (3)
  1. COLCHICINE [Suspect]
     Dosage: 15 MG, UNK
  2. INDOMETHACIN                       /00003801/ [Concomitant]
  3. ZOPICLONE [Concomitant]

REACTIONS (4)
  - Toxicity to various agents [Fatal]
  - Renal failure acute [Fatal]
  - Hypovolaemia [Fatal]
  - Overdose [Unknown]
